FAERS Safety Report 10207932 (Version 1)
Quarter: 2014Q2

REPORT INFORMATION
  Report Type: Spontaneous
  Country: US (occurrence: None)
  Receive Date: 20140528
  Receipt Date: 20140528
  Transmission Date: 20141212
  Serious: Yes (Other)
  Sender: FDA-Public Use
  Company Number: None

PATIENT
  Sex: Male

DRUGS (4)
  1. SOVALDI 400MG GILEAD SCIENCES [Suspect]
     Indication: HEPATITIS C
     Route: 048
     Dates: start: 20140328
  2. LEVEMIR [Concomitant]
  3. ZOFRAN [Concomitant]
  4. REBAPALE [Concomitant]

REACTIONS (6)
  - Nausea [None]
  - Decreased appetite [None]
  - Dysgeusia [None]
  - Weight decreased [None]
  - Depression [None]
  - Refusal of treatment by patient [None]
